FAERS Safety Report 5700442-8 (Version None)
Quarter: 2008Q2

REPORT INFORMATION
  Report Type: 
  Country: None (occurrence: None)
  Receive Date: 20080410
  Receipt Date: 20080328
  Transmission Date: 20081010
  Serious: Yes (Other)
  Sender: FDA-Public Use
  Company Number: US-PFIZER INC-2008028530

PATIENT
  Sex: Female
  Weight: 53.5 kg

DRUGS (6)
  1. CHANTIX [Suspect]
     Indication: SMOKING CESSATION THERAPY
     Dates: start: 20080130, end: 20080201
  2. LIPITOR [Suspect]
     Indication: BLOOD CHOLESTEROL INCREASED
     Dates: start: 20060101, end: 20060101
  3. TOPROL-XL [Concomitant]
  4. PLAVIX [Concomitant]
  5. FOLIC ACID [Concomitant]
  6. SIMVASTATIN [Concomitant]

REACTIONS (7)
  - ASTHENIA [None]
  - CALCINOSIS [None]
  - CONSTIPATION [None]
  - DIZZINESS [None]
  - MYALGIA [None]
  - PALPITATIONS [None]
  - PRESYNCOPE [None]
